FAERS Safety Report 22134980 (Version 1)
Quarter: 2023Q1

REPORT INFORMATION
  Report Type: Spontaneous
  Country: US (occurrence: None)
  Receive Date: 20230323
  Receipt Date: 20230323
  Transmission Date: 20230418
  Serious: Yes (Death, Hospitalization)
  Sender: FDA-Public Use
  Company Number: None

PATIENT
  Age: 61 Year
  Sex: Male

DRUGS (9)
  1. LUMASON [Suspect]
     Active Substance: SULFUR HEXAFLUORIDE
     Indication: Echocardiogram
     Dates: start: 20230313, end: 20230313
  2. JARDIANCE [Concomitant]
     Active Substance: EMPAGLIFLOZIN
  3. ENTRESTO [Concomitant]
     Active Substance: SACUBITRIL\VALSARTAN
  4. CRESTOR [Concomitant]
     Active Substance: ROSUVASTATIN CALCIUM
  5. LANTUS [Concomitant]
     Active Substance: INSULIN GLARGINE
  6. CARVEDILOL [Concomitant]
     Active Substance: CARVEDILOL
  7. DIGOXIN [Concomitant]
     Active Substance: DIGOXIN
  8. ZOLOFT [Concomitant]
     Active Substance: SERTRALINE HYDROCHLORIDE
  9. CHEWABLE ASPIRIN [Concomitant]
     Active Substance: ASPIRIN

REACTIONS (8)
  - Contrast media reaction [None]
  - Paraesthesia [None]
  - Skin burning sensation [None]
  - Erythema [None]
  - Dyspnoea [None]
  - Anaphylactic shock [None]
  - Cardiac arrest [None]
  - Hypersensitivity [None]

NARRATIVE: CASE EVENT DATE: 20230313
